FAERS Safety Report 5161840-7 (Version None)
Quarter: 2006Q4

REPORT INFORMATION
  Report Type: 
  Country: None (occurrence: None)
  Receive Date: 20061130
  Receipt Date: 20060928
  Transmission Date: 20070319
  Serious: Yes (Other)
  Sender: FDA-Public Use
  Company Number: US-GLAXOSMITHKLINE-A0621828A

PATIENT
  Age: 33 Year
  Sex: Female

DRUGS (3)
  1. WELLBUTRIN XL [Suspect]
     Indication: DEPRESSION
     Dosage: 150MG SEE DOSAGE TEXT
     Route: 048
     Dates: start: 20060801
  2. LOPID [Concomitant]
  3. XANAX [Concomitant]

REACTIONS (2)
  - APHASIA [None]
  - DYSARTHRIA [None]
